FAERS Safety Report 6609796-1 (Version None)
Quarter: 2010Q1

REPORT INFORMATION
  Report Type: 
  Country: None (occurrence: None)
  Receive Date: 20100302
  Receipt Date: 20100222
  Transmission Date: 20100710
  Serious: Yes (Hospitalization)
  Sender: FDA-Public Use
  Company Number: BR-ELI_LILLY_AND_COMPANY-BR201002006144

PATIENT
  Age: 44 Year
  Sex: Male
  Weight: 106 kg

DRUGS (1)
  1. HUMULIN N [Suspect]
     Indication: DIABETES MELLITUS
     Dosage: 3 IU, UNKNOWN
     Route: 058
     Dates: start: 20080801

REACTIONS (2)
  - HYPERGLYCAEMIA [None]
  - HYPOTENSION [None]
